FAERS Safety Report 10043217 (Version 1)
Quarter: 2014Q1

REPORT INFORMATION
  Report Type: Spontaneous
  Country: None (occurrence: None)
  Receive Date: 20140327
  Receipt Date: 20140327
  Transmission Date: 20141002
  Serious: Yes (Other)
  Sender: FDA-Public Use
  Company Number: None

PATIENT
  Age: 54 Year
  Sex: Female
  Weight: 79.38 kg

DRUGS (7)
  1. TEGRETOL [Suspect]
     Indication: MULTIPLE SCLEROSIS
     Route: 048
     Dates: start: 20130904, end: 20130920
  2. COPAXONE [Concomitant]
  3. BACLOFEN [Concomitant]
  4. AMBIEN(PRN) [Concomitant]
  5. NUVIGIL [Concomitant]
  6. VITAMIN B-12 [Concomitant]
  7. VITAMIN D [Concomitant]

REACTIONS (3)
  - Platelet count decreased [None]
  - Malaise [None]
  - Laboratory test abnormal [None]
